FAERS Safety Report 4637358-4 (Version None)
Quarter: 2005Q2

REPORT INFORMATION
  Report Type: 
  Country: None (occurrence: None)
  Receive Date: 20050328
  Receipt Date: 20050302
  Transmission Date: 20051028
  Serious: Yes (Other)
  Sender: FDA-Public Use
  Company Number: USA041080740

PATIENT
  Age: 6 Year
  Sex: Female
  Weight: 17 kg

DRUGS (3)
  1. STRATTERA [Suspect]
     Indication: ATTENTION DEFICIT/HYPERACTIVITY DISORDER
     Dosage: 25 MG DAY
     Dates: start: 20040921, end: 20041008
  2. IMIPRAMINE [Concomitant]
  3. SULFAMETHOXAZOLE [Concomitant]

REACTIONS (4)
  - NAUSEA [None]
  - PRESCRIBED OVERDOSE [None]
  - TACHYCARDIA [None]
  - VOMITING [None]
